FAERS Safety Report 4646174-9 (Version None)
Quarter: 2005Q2

REPORT INFORMATION
  Report Type: 
  Country: None (occurrence: None)
  Receive Date: 20050422
  Receipt Date: 20050413
  Transmission Date: 20051028
  Serious: Yes (Hospitalization)
  Sender: FDA-Public Use
  Company Number: CHPA2005US01069

PATIENT
  Age: 38 Year
  Sex: Male

DRUGS (6)
  1. NICOTINE [Suspect]
     Dosage: 7 MG, TRANSDERMAL
     Route: 062
     Dates: start: 20050124, end: 20050207
  2. CLOZAPINE [Suspect]
     Indication: SCHIZOPHRENIA
     Dosage: 300-400MG QD, ORAL
     Route: 048
     Dates: start: 20000501
  3. EFFEXOR XR [Concomitant]
  4. VITAMIN E [Concomitant]
  5. LOPID [Concomitant]
  6. ABILIFY [Concomitant]

REACTIONS (2)
  - CONFUSIONAL STATE [None]
  - DELIRIUM [None]
